FAERS Safety Report 25961431 (Version 1)
Quarter: 2025Q4

REPORT INFORMATION
  Report Type: Spontaneous
  Country: CA (occurrence: CA)
  Receive Date: 20251027
  Receipt Date: 20251027
  Transmission Date: 20260117
  Serious: Yes (Other)
  Sender: AUROBINDO
  Company Number: CA-MLMSERVICE-20251013-PI676096-00218-1

PATIENT
  Age: 50 Year
  Sex: Female

DRUGS (6)
  1. METHOTREXATE [Suspect]
     Active Substance: METHOTREXATE
     Indication: Dermatomyositis
     Dosage: UNK
     Route: 065
  2. HYDROXYCHLOROQUINE [Suspect]
     Active Substance: HYDROXYCHLOROQUINE
     Indication: Dermatomyositis
     Dosage: UNK
     Route: 065
  3. MYCOPHENOLIC ACID [Suspect]
     Active Substance: MYCOPHENOLIC ACID
     Indication: Dermatomyositis
     Dosage: UNK
     Route: 065
  4. ROFLUMILAST [Suspect]
     Active Substance: ROFLUMILAST
     Indication: Dermatomyositis
     Dosage: UNK
     Route: 048
  5. ROFLUMILAST [Suspect]
     Active Substance: ROFLUMILAST
     Dosage: UNK
     Route: 061
  6. SOTYKTU [Concomitant]
     Active Substance: DEUCRAVACITINIB
     Indication: Dermatomyositis
     Dosage: 6 MILLIGRAM, DAILY
     Route: 048

REACTIONS (2)
  - Drug ineffective [Unknown]
  - Gastrointestinal disorder [Unknown]
